FAERS Safety Report 4893295-1 (Version None)
Quarter: 2006Q1

REPORT INFORMATION
  Report Type: 
  Country: None (occurrence: None)
  Receive Date: 20060123
  Receipt Date: 20060123
  Transmission Date: 20060701
  Serious: No
  Sender: FDA-Public Use
  Company Number: None

PATIENT
  Age: 68 Year
  Sex: Male
  Weight: 41.2773 kg

DRUGS (2)
  1. FENTANYL [Suspect]
     Indication: SEDATION
     Dosage: 50 MCG
     Dates: start: 20030306
  2. VERSED [Suspect]
     Dosage: 3 MG

REACTIONS (1)
  - OXYGEN SATURATION DECREASED [None]
